FAERS Safety Report 6403228-4 (Version None)
Quarter: 2009Q4

REPORT INFORMATION
  Report Type: 
  Country: None (occurrence: None)
  Receive Date: 20091016
  Receipt Date: 20091007
  Transmission Date: 20100525
  Serious: Yes (Other)
  Sender: FDA-Public Use
  Company Number: GB-AMGEN-US365942

PATIENT
  Sex: Female

DRUGS (1)
  1. ENBREL [Suspect]
     Indication: DRUG USE FOR UNKNOWN INDICATION
     Route: 065
     Dates: start: 20090401

REACTIONS (5)
  - ARTHRALGIA [None]
  - EYE PAIN [None]
  - INFECTION [None]
  - JOINT SWELLING [None]
  - VITREOUS DETACHMENT [None]
